FAERS Safety Report 7556845-2 (Version None)
Quarter: 2011Q2

REPORT INFORMATION
  Report Type: 
  Country: None (occurrence: None)
  Receive Date: 20110620
  Receipt Date: 20110616
  Transmission Date: 20111010
  Serious: Yes (Hospitalization)
  Sender: FDA-Public Use
  Company Number: US-PFIZER INC-2006144021

PATIENT
  Sex: Male
  Weight: 81 kg

DRUGS (10)
  1. LORTAB [Concomitant]
     Indication: PAIN
     Route: 048
     Dates: start: 20051211
  2. WARFARIN SODIUM [Suspect]
     Indication: AORTIC VALVE REPLACEMENT
     Dosage: 27.5 MG, WEEKLY
     Route: 048
     Dates: start: 20060628, end: 20061008
  3. TOLTERODINE TARTRATE [Concomitant]
     Indication: HYPERTONIC BLADDER
     Route: 048
     Dates: start: 20051101
  4. MAALOX [Concomitant]
     Indication: DYSPEPSIA
     Route: 048
     Dates: start: 20051101
  5. LEUPROLIDE ACETATE [Concomitant]
     Indication: PROSTATE CANCER
     Route: 058
     Dates: start: 20051227
  6. SUNITINIB MALATE [Suspect]
     Indication: RENAL CELL CARCINOMA
     Dosage: 50 MG, 1X/DAY
     Route: 048
     Dates: start: 20051220
  7. ATENOLOL [Concomitant]
     Indication: AORTIC VALVE REPLACEMENT
     Route: 048
     Dates: start: 20030101
  8. TERAZOSIN HCL [Concomitant]
     Indication: HYPERTONIC BLADDER
     Route: 048
     Dates: start: 20060628
  9. FELDENE [Suspect]
     Indication: OSTEOARTHRITIS
     Dosage: 20 MG, 1X/DAY
     Route: 048
     Dates: start: 19900101, end: 20061014
  10. TAMSULOSIN HCL [Concomitant]
     Indication: HYPERTONIC BLADDER
     Route: 048
     Dates: start: 20041101

REACTIONS (1)
  - ANAL FISSURE [None]
